FAERS Safety Report 6832893-2 (Version None)
Quarter: 2010Q3

REPORT INFORMATION
  Report Type: 
  Country: None (occurrence: None)
  Receive Date: 20100712
  Receipt Date: 20100702
  Transmission Date: 20110219
  Serious: Yes (Hospitalization)
  Sender: FDA-Public Use
  Company Number: BW-ABBOTT-08P-019-0434237-00

PATIENT
  Age: 36 Year
  Sex: Female

DRUGS (5)
  1. KALETRA [Suspect]
     Indication: HUMAN IMMUNODEFICIENCY VIRUS TRANSMISSION
     Route: 048
     Dates: start: 20071011, end: 20080104
  2. KALETRA [Suspect]
     Indication: PROPHYLAXIS
  3. COMBIVIR [Concomitant]
     Indication: HUMAN IMMUNODEFICIENCY VIRUS TRANSMISSION
     Route: 048
     Dates: start: 20071011, end: 20080104
  4. COMBIVIR [Concomitant]
     Indication: PROPHYLAXIS
  5. METHYLDOPA [Concomitant]
     Indication: GESTATIONAL HYPERTENSION
     Dates: start: 20071001

REACTIONS (2)
  - GESTATIONAL HYPERTENSION [None]
  - INTRA-UTERINE DEATH [None]
